FAERS Safety Report 8717897 (Version 2)
Quarter: 2015Q2

REPORT INFORMATION
  Report Type: Report from Study
  Country: US (occurrence: US)
  Receive Date: 20120810
  Receipt Date: 20150625
  Transmission Date: 20150821
  Serious: Yes (Other)
  Sender: FDA-Public Use
  Company Number: US-ROCHE-1098854

PATIENT
  Age: 62 Year
  Sex: Male

DRUGS (5)
  1. ACTIVASE [Suspect]
     Active Substance: ALTEPLASE
     Indication: ACUTE MYOCARDIAL INFARCTION
     Route: 065
  2. LIDOCAINE. [Concomitant]
     Active Substance: LIDOCAINE
     Route: 042
  3. NITROGLYCERIN. [Concomitant]
     Active Substance: NITROGLYCERIN
  4. DIGITALIS [Concomitant]
     Active Substance: DIGITALIS
  5. LIDOCAINE. [Concomitant]
     Active Substance: LIDOCAINE
     Route: 042

REACTIONS (2)
  - Reperfusion arrhythmia [Unknown]
  - Arrhythmia supraventricular [Unknown]
